FAERS Safety Report 18489904 (Version 1)
Quarter: 2020Q4

REPORT INFORMATION
  Report Type: Spontaneous
  Country: TR (occurrence: TR)
  Receive Date: 20201111
  Receipt Date: 20201111
  Transmission Date: 20210114
  Serious: Yes (Other)
  Sender: FDA-Public Use
  Company Number: TR-ROCHE-2710569

PATIENT
  Age: 60 Year
  Sex: Female
  Weight: 72 kg

DRUGS (1)
  1. PERJETA [Suspect]
     Active Substance: PERTUZUMAB
     Indication: BREAST CANCER METASTATIC
     Route: 042
     Dates: start: 20201016, end: 20201016

REACTIONS (1)
  - Chest pain [Unknown]

NARRATIVE: CASE EVENT DATE: 20201016
